FAERS Safety Report 9985745 (Version 1)
Quarter: 2014Q1

REPORT INFORMATION
  Report Type: Report from Study
  Country: US (occurrence: US)
  Receive Date: 20140307
  Receipt Date: 20140307
  Transmission Date: 20141002
  Serious: No
  Sender: FDA-Public Use
  Company Number: US-ABBVIE-13P-163-1091513-00

PATIENT
  Age: 57 Year
  Sex: Female

DRUGS (7)
  1. HUMIRA [Suspect]
     Indication: PSORIASIS
     Dates: start: 20130130, end: 20130306
  2. LEVOTHYROXINE [Concomitant]
     Indication: THYROID DISORDER
  3. SULFASALAZINE [Concomitant]
     Indication: ARTHRITIS
  4. FOLIC ACID [Concomitant]
     Indication: VITAMIN SUPPLEMENTATION
  5. FLUOXETINE [Concomitant]
     Indication: HOT FLUSH
  6. PREVASTATIN [Concomitant]
     Indication: BLOOD CHOLESTEROL
  7. BABY ASPIRIN [Concomitant]
     Indication: THROMBOSIS PROPHYLAXIS

REACTIONS (2)
  - Palpitations [Recovered/Resolved]
  - Blood pressure abnormal [Recovered/Resolved]
